FAERS Safety Report 17485999 (Version 15)
Quarter: 2021Q3

REPORT INFORMATION
  Report Type: Spontaneous
  Country: JP (occurrence: JP)
  Receive Date: 20200303
  Receipt Date: 20210921
  Transmission Date: 20211014
  Serious: Yes (Hospitalization, Other)
  Sender: FDA-Public Use
  Company Number: JP-BRISTOL-MYERS SQUIBB COMPANY-BMS-2020-017355

PATIENT
  Age: 70 Year
  Sex: Male
  Weight: 76 kg

DRUGS (36)
  1. YERVOY [Suspect]
     Active Substance: IPILIMUMAB
     Indication: MALIGNANT MELANOMA
     Dosage: 3 MILLIGRAM/KILOGRAM, Q3WK
     Route: 041
     Dates: start: 20190415, end: 20190618
  2. BRAFTOVI [Suspect]
     Active Substance: ENCORAFENIB
     Indication: MALIGNANT MELANOMA
     Dosage: 450 MILLIGRAM, QD
     Route: 048
     Dates: start: 20190826, end: 20190827
  3. BRAFTOVI [Suspect]
     Active Substance: ENCORAFENIB
     Dosage: 450 MILLIGRAM
     Route: 048
     Dates: start: 20191120, end: 20191202
  4. FAMOTIDINE. [Concomitant]
     Active Substance: FAMOTIDINE
     Indication: PRODUCT USED FOR UNKNOWN INDICATION
     Dosage: UNK
     Route: 048
  5. ADOAIR [Concomitant]
     Active Substance: FLUTICASONE PROPIONATE\SALMETEROL XINAFOATE
     Indication: PRODUCT USED FOR UNKNOWN INDICATION
     Dosage: UNK
     Route: 065
  6. TRAMAL [Concomitant]
     Active Substance: TRAMADOL
     Indication: PRODUCT USED FOR UNKNOWN INDICATION
     Dosage: UNK
     Route: 048
  7. GABEXATE MESILATE [Suspect]
     Active Substance: GABEXATE MESYLATE
     Indication: PANCREATITIS
     Dosage: 400 MILLIGRAM, QD
     Route: 065
     Dates: start: 20190902, end: 20190905
  8. PREDONINE [Concomitant]
     Active Substance: PREDNISOLONE
     Indication: ERYTHEMA
     Dosage: 15 MILLIGRAM( AFTER BREAKFAST AND LUNCH))
     Route: 048
     Dates: end: 20190519
  9. PREDONINE [Concomitant]
     Active Substance: PREDNISOLONE
     Dosage: 30 MILLIGRAM
     Route: 065
     Dates: start: 20190705
  10. PREDONINE [Concomitant]
     Active Substance: PREDNISOLONE
     Dosage: 35 MILLIGRAM
     Route: 065
     Dates: end: 20190618
  11. PREDONINE [Concomitant]
     Active Substance: PREDNISOLONE
     Dosage: 25 MILLIGRAM
     Route: 065
     Dates: start: 20190716
  12. BRAFTOVI [Suspect]
     Active Substance: ENCORAFENIB
     Dosage: 300 MILLIGRAM
     Route: 048
     Dates: start: 20191116, end: 20191119
  13. MEKTOVI [Suspect]
     Active Substance: BINIMETINIB
     Dosage: 90 MILLIGRAM, QD
     Route: 048
     Dates: start: 20191219, end: 20200125
  14. PREDONINE [Concomitant]
     Active Substance: PREDNISOLONE
     Dosage: 10 MILLIGRAM
     Route: 065
     Dates: start: 20190610, end: 20200630
  15. PREDONINE [Concomitant]
     Active Substance: PREDNISOLONE
     Dosage: 20 MILLIGRAM
     Route: 065
     Dates: start: 20200722
  16. PREDONINE [Concomitant]
     Active Substance: PREDNISOLONE
     Dosage: 15 MILLIGRAM
     Route: 065
     Dates: start: 20190819
  17. PREDONINE [Concomitant]
     Active Substance: PREDNISOLONE
     Dosage: 70 MILLIGRAM
     Route: 065
  18. PITAVASTATIN CA [Concomitant]
     Active Substance: PITAVASTATIN CALCIUM
     Indication: PRODUCT USED FOR UNKNOWN INDICATION
     Dosage: UNK
     Route: 048
  19. MAGNESIUM OXIDE. [Concomitant]
     Active Substance: MAGNESIUM OXIDE
     Indication: PRODUCT USED FOR UNKNOWN INDICATION
     Dosage: UNK
     Route: 048
  20. CALONAL [Concomitant]
     Active Substance: ACETAMINOPHEN
     Indication: PRODUCT USED FOR UNKNOWN INDICATION
     Dosage: UNK
     Route: 048
  21. BRAFTOVI [Suspect]
     Active Substance: ENCORAFENIB
     Dosage: 300 MILLIGRAM
     Route: 048
     Dates: start: 20191219, end: 20191224
  22. MEKTOVI [Suspect]
     Active Substance: BINIMETINIB
     Indication: MALIGNANT MELANOMA
     Dosage: 45 MILLIGRAM, Q12H
     Route: 048
     Dates: start: 20190826, end: 20190827
  23. DENOTAS [Concomitant]
     Active Substance: CALCIUM CARBONATE\CHOLECALCIFEROL\MAGNESIUM CARBONATE
     Indication: PRODUCT USED FOR UNKNOWN INDICATION
     Dosage: UNK
     Route: 048
  24. IMIDAPRIL HYDROCHLORIDE [Concomitant]
     Active Substance: IMIDAPRIL HYDROCHLORIDE
     Indication: PRODUCT USED FOR UNKNOWN INDICATION
     Dosage: UNK
     Route: 048
  25. CLOPIDOGREL [CLOPIDOGREL BISULFATE] [Concomitant]
     Active Substance: CLOPIDOGREL BISULFATE
     Indication: PRODUCT USED FOR UNKNOWN INDICATION
     Dosage: UNK
     Route: 048
  26. CELECOX [Concomitant]
     Active Substance: CELECOXIB
     Indication: PRODUCT USED FOR UNKNOWN INDICATION
     Dosage: UNK
     Route: 048
  27. OPDIVO [Suspect]
     Active Substance: NIVOLUMAB
     Indication: MALIGNANT MELANOMA
     Dosage: 80 MILLIGRAM/KILOGRAM, Q3WK
     Route: 041
     Dates: start: 20190415, end: 20190618
  28. MEKTOVI [Suspect]
     Active Substance: BINIMETINIB
     Dosage: 90 MILLIGRAM, QD
     Route: 048
     Dates: start: 20191116, end: 20191202
  29. PREDONINE [Concomitant]
     Active Substance: PREDNISOLONE
     Dosage: 12.5 MILLIGRAM
     Route: 065
     Dates: start: 20190520
  30. PREDONINE [Concomitant]
     Active Substance: PREDNISOLONE
     Dosage: 35 MILLIGRAM
     Route: 065
  31. AZOSEMIDE [Concomitant]
     Active Substance: AZOSEMIDE
     Indication: PRODUCT USED FOR UNKNOWN INDICATION
     Dosage: UNK
     Route: 048
  32. BRAFTOVI [Suspect]
     Active Substance: ENCORAFENIB
     Dosage: 450 MILLIGRAM
     Route: 048
     Dates: start: 20191225, end: 20200125
  33. DENOSUMAB [Concomitant]
     Active Substance: DENOSUMAB
     Indication: METASTASES TO BONE
     Dosage: 120 MILLIGRAM
     Route: 065
     Dates: start: 201904
  34. PREDONINE [Concomitant]
     Active Substance: PREDNISOLONE
     Dosage: 17.5 MILLIGRAM
     Route: 065
     Dates: start: 201908
  35. AMLODIPINE [AMLODIPINE BESILATE] [Concomitant]
     Active Substance: AMLODIPINE BESYLATE
     Indication: PRODUCT USED FOR UNKNOWN INDICATION
     Dosage: UNK
     Route: 048
  36. RINDERON A [Concomitant]
     Active Substance: BETAMETHASONE SODIUM PHOSPHATE\NEOMYCIN SULFATE
     Indication: PRODUCT USED FOR UNKNOWN INDICATION
     Dosage: UNK
     Route: 065

REACTIONS (6)
  - Pneumonia [Recovering/Resolving]
  - Pancreatitis [Recovered/Resolved]
  - Retinitis [Unknown]
  - Liver disorder [Recovered/Resolved]
  - Serous retinal detachment [Recovering/Resolving]
  - Hyperkalaemia [Recovered/Resolved]

NARRATIVE: CASE EVENT DATE: 20190827
